FAERS Safety Report 9424489 (Version 1)
Quarter: 2013Q3

REPORT INFORMATION
  Report Type: Spontaneous
  Country: US (occurrence: None)
  Receive Date: 20130726
  Receipt Date: 20130726
  Transmission Date: 20140515
  Serious: Yes (Hospitalization)
  Sender: FDA-Public Use
  Company Number: None

PATIENT
  Age: 55 Year
  Sex: Female
  Weight: 86.8 kg

DRUGS (8)
  1. BYETTA (EXENATIDE) PEN , DISPOSABLE [Suspect]
     Indication: TYPE 2 DIABETES MELLITUS
     Route: 058
     Dates: start: 20120930, end: 20130512
  2. FISH OIL [Concomitant]
  3. INSULIN LEVEMIR [Concomitant]
  4. ATORVASTATIN [Concomitant]
  5. LISINOPRIL [Concomitant]
  6. NEPHROCAPS [Concomitant]
  7. METFORMIN [Concomitant]
  8. BACTROBAN [Concomitant]

REACTIONS (2)
  - Pancreatitis acute [None]
  - Gallbladder disorder [None]
